FAERS Safety Report 4743485-3 (Version None)
Quarter: 2005Q3

REPORT INFORMATION
  Report Type: 
  Country: None (occurrence: None)
  Receive Date: 20050809
  Receipt Date: 20050727
  Transmission Date: 20060218
  Serious: Yes (Hospitalization)
  Sender: FDA-Public Use
  Company Number: CLOF-10053

PATIENT
  Age: 78 Year
  Sex: Male

DRUGS (2)
  1. CLOFARABINE [Suspect]
     Indication: ACUTE MYELOID LEUKAEMIA
     Dates: start: 20050426, end: 20050620
  2. CIPROFLOXACIN [Concomitant]

REACTIONS (5)
  - NEPHROTIC SYNDROME [None]
  - NEUTROPENIC SEPSIS [None]
  - OEDEMA PERIPHERAL [None]
  - PULMONARY MYCOSIS [None]
  - SCROTAL OEDEMA [None]
